FAERS Safety Report 16644085 (Version 1)
Quarter: 2019Q3

REPORT INFORMATION
  Report Type: Spontaneous
  Country: US (occurrence: US)
  Receive Date: 20190729
  Receipt Date: 20190729
  Transmission Date: 20191004
  Serious: Yes (Hospitalization, Other)
  Sender: FDA-Public Use
  Company Number: US-009507513-1907USA014966

PATIENT

DRUGS (1)
  1. PRINIVIL [Suspect]
     Active Substance: LISINOPRIL
     Route: 048

REACTIONS (6)
  - Respiratory arrest [Unknown]
  - Rash generalised [Unknown]
  - Swollen tongue [Unknown]
  - Throat lesion [Unknown]
  - Cheilitis [Unknown]
  - Drug hypersensitivity [Unknown]
